FAERS Safety Report 8107291-4 (Version None)
Quarter: 2012Q1

REPORT INFORMATION
  Report Type: 
  Country: None (occurrence: None)
  Receive Date: 20120202
  Receipt Date: 20120118
  Transmission Date: 20120608
  Serious: Yes (Hospitalization, Other)
  Sender: FDA-Public Use
  Company Number: DE-AMGEN-DEUSP2012000312

PATIENT
  Age: 60 Year
  Sex: Female
  Weight: 54 kg

DRUGS (4)
  1. LEVOTHYROXINE SODIUM [Concomitant]
     Dosage: 50 UNK/D
  2. ENBREL [Suspect]
     Indication: PRODUCT USED FOR UNKNOWN INDICATION
     Dosage: 25 MG, 2X/WEEK
     Route: 058
     Dates: start: 20040101
  3. CALCIMAGON-D3 [Concomitant]
     Dosage: 1X1/D
     Route: 048
  4. PREDNISONE TAB [Concomitant]
     Dosage: 5 MG/DAY
     Route: 048

REACTIONS (11)
  - HEART RATE INCREASED [None]
  - HAEMATOMA [None]
  - EYELID OEDEMA [None]
  - PRECANCEROUS SKIN LESION [None]
  - ACTINIC KERATOSIS [None]
  - TENSION HEADACHE [None]
  - RESTLESSNESS [None]
  - CHEST DISCOMFORT [None]
  - DIZZINESS [None]
  - PRESYNCOPE [None]
  - HEADACHE [None]
